FAERS Safety Report 4378354-4 (Version None)
Quarter: 2004Q2

REPORT INFORMATION
  Report Type: 
  Country: None (occurrence: None)
  Receive Date: 20040609
  Receipt Date: 20040601
  Transmission Date: 20050107
  Serious: No
  Sender: FDA-Public Use
  Company Number: 2004UW03227

PATIENT
  Age: 60 Year
  Sex: Female
  Weight: 109.7705 kg

DRUGS (10)
  1. SEROQUEL [Suspect]
     Indication: ANXIETY
     Dosage: 400 MG DAILY; PO
     Route: 048
     Dates: start: 20030612, end: 20040210
  2. SEROQUEL [Suspect]
     Indication: DEPRESSION
     Dosage: 400 MG DAILY; PO
     Route: 048
     Dates: start: 20030612, end: 20040210
  3. SEROQUEL [Suspect]
     Indication: SCHIZOPHRENIA, PARANOID TYPE
     Dosage: 400 MG DAILY; PO
     Route: 048
     Dates: start: 20030612, end: 20040210
  4. SEROQUEL [Suspect]
     Indication: ANXIETY
     Dosage: 50 MG DAILY; PO
     Route: 048
  5. SEROQUEL [Suspect]
     Indication: DEPRESSION
     Dosage: 50 MG DAILY; PO
     Route: 048
  6. SEROQUEL [Suspect]
     Indication: SCHIZOPHRENIA, PARANOID TYPE
     Dosage: 50 MG DAILY; PO
     Route: 048
  7. EFFEXOR XR [Concomitant]
  8. SOMA [Concomitant]
  9. STELAZINE [Concomitant]
  10. MELLARIL [Concomitant]

REACTIONS (24)
  - AGITATION [None]
  - ALCOHOL USE [None]
  - ALOPECIA [None]
  - ASTHENIA [None]
  - BACK PAIN [None]
  - BLEPHAROSPASM [None]
  - BODY TEMPERATURE DECREASED [None]
  - BODY TEMPERATURE INCREASED [None]
  - CHEILITIS [None]
  - CONDITION AGGRAVATED [None]
  - DEHYDRATION [None]
  - DRY SKIN [None]
  - EMOTIONAL DISORDER [None]
  - EPISTAXIS [None]
  - ERYTHEMA [None]
  - HAIR TEXTURE ABNORMAL [None]
  - HYPOAESTHESIA [None]
  - HYPOTRICHOSIS [None]
  - MYALGIA [None]
  - PRURITUS [None]
  - PRURITUS GENERALISED [None]
  - RASH [None]
  - RHINORRHOEA [None]
  - URTICARIA [None]
